FAERS Safety Report 11746500 (Version 1)
Quarter: 2015Q4

REPORT INFORMATION
  Report Type: Spontaneous
  Country: IN (occurrence: IN)
  Receive Date: 20151117
  Receipt Date: 20151117
  Transmission Date: 20160304
  Serious: Yes (Hospitalization)
  Sender: FDA-Public Use
  Company Number: IN-MYLANLABS-2015M1039742

PATIENT

DRUGS (1)
  1. LEVONORGESTREL. [Suspect]
     Active Substance: LEVONORGESTREL
     Indication: CONTRACEPTION
     Dosage: TWO TABLETS (1.50MG) AS SINGLE DOSE AFTER 48 HOURS
     Route: 065

REACTIONS (3)
  - Drug ineffective [Recovered/Resolved]
  - Pregnancy on contraceptive [Recovered/Resolved]
  - Ectopic pregnancy [Recovered/Resolved]
